FAERS Safety Report 7342948-4 (Version None)
Quarter: 2011Q1

REPORT INFORMATION
  Report Type: 
  Country: None (occurrence: None)
  Receive Date: 20110310
  Receipt Date: 20110224
  Transmission Date: 20110831
  Serious: Yes (Hospitalization)
  Sender: FDA-Public Use
  Company Number: PHHY2011US17496

PATIENT
  Sex: Male

DRUGS (1)
  1. EXJADE [Suspect]
     Indication: IRON METABOLISM DISORDER
     Dosage: 2250 MG, DAILY
     Route: 048
     Dates: start: 20090109

REACTIONS (2)
  - GENERAL PHYSICAL HEALTH DETERIORATION [None]
  - DRUG INEFFECTIVE [None]
